FAERS Safety Report 13814704 (Version 3)
Quarter: 2018Q4

REPORT INFORMATION
  Report Type: Report from Study
  Country: US (occurrence: US)
  Receive Date: 20170731
  Receipt Date: 20181009
  Transmission Date: 20190204
  Serious: Yes (Other)
  Sender: FDA-Public Use
  Company Number: US-PFIZER INC-2017327565

PATIENT
  Sex: Male

DRUGS (1)
  1. PALBOCICLIB [Suspect]
     Active Substance: PALBOCICLIB
     Dosage: 125 MG, 1X/DAY
     Dates: start: 20150905

REACTIONS (2)
  - Leukopenia [Recovering/Resolving]
  - Cytopenia [Recovering/Resolving]

NARRATIVE: CASE EVENT DATE: 20160920
